FAERS Safety Report 5448649-1 (Version None)
Quarter: 2007Q3

REPORT INFORMATION
  Report Type: 
  Country: None (occurrence: None)
  Receive Date: 20070907
  Receipt Date: 20070907
  Transmission Date: 20080115
  Serious: Yes (Other)
  Sender: FDA-Public Use
  Company Number: None

PATIENT
  Age: 65 Year
  Sex: Female
  Weight: 72.5755 kg

DRUGS (1)
  1. AVASTIN [Suspect]
     Indication: COLON CANCER
     Dosage: 720 MG EVERY 2 WEEKS IV DRIP
     Route: 041
     Dates: start: 20070604, end: 20070731

REACTIONS (4)
  - CYANOSIS [None]
  - JUGULAR VEIN THROMBOSIS [None]
  - PALLOR [None]
  - VENA CAVA THROMBOSIS [None]
